FAERS Safety Report 4311886-3 (Version None)
Quarter: 2004Q1

REPORT INFORMATION
  Report Type: 
  Country: None (occurrence: None)
  Receive Date: 20040302
  Receipt Date: 20031121
  Transmission Date: 20041129
  Serious: No
  Sender: FDA-Public Use
  Company Number: 200328877BWH

PATIENT
  Age: 67 Year
  Sex: Male
  Weight: 79.3795 kg

DRUGS (19)
  1. LEVITRA [Suspect]
     Indication: ERECTILE DYSFUNCTION
     Dosage: 10 MG, TOTAL DAILY, ORAL
     Route: 048
     Dates: start: 20031119
  2. VIAGRA [Concomitant]
  3. L-ARGININE [Concomitant]
  4. VITAMIN B-12 [Concomitant]
  5. ATENOLOL [Concomitant]
  6. SAW PALMETTO [Concomitant]
  7. VITAMIN E [Concomitant]
  8. FOLIC ACID [Concomitant]
  9. FLAXSEED OIL [Concomitant]
  10. GLUCOSAMINE [Concomitant]
  11. COENZYME Q10 [Concomitant]
  12. VITAMIN C [Concomitant]
  13. BOSWELLIA [Concomitant]
  14. CORAL CALCIUM [Concomitant]
  15. MAGNESIUM [Concomitant]
  16. GARLIC OIL [Concomitant]
  17. MICARDIS HCT [Concomitant]
  18. LISINOPRIL [Concomitant]
  19. HYDROCHLOROTHIAZIDE [Concomitant]

REACTIONS (1)
  - EXTRASYSTOLES [None]
